FAERS Safety Report 5313102-2 (Version None)
Quarter: 2007Q2

REPORT INFORMATION
  Report Type: 
  Country: None (occurrence: None)
  Receive Date: 20070430
  Receipt Date: 20070419
  Transmission Date: 20071010
  Serious: Yes (Other)
  Sender: FDA-Public Use
  Company Number: AU-PFIZER INC-2007032248

PATIENT
  Age: 22 Year
  Sex: Female

DRUGS (2)
  1. ZELDOX (CAPSULES) [Suspect]
  2. OLANZAPINE [Concomitant]

REACTIONS (2)
  - AKATHISIA [None]
  - TONGUE DISORDER [None]
